FAERS Safety Report 7314524-0 (Version None)
Quarter: 2011Q1

REPORT INFORMATION
  Report Type: 
  Country: None (occurrence: None)
  Receive Date: 20110225
  Receipt Date: 20100922
  Transmission Date: 20110831
  Serious: No
  Sender: FDA-Public Use
  Company Number: US-MYLANLABS-2010S1017448

PATIENT
  Age: 23 Year
  Sex: Female

DRUGS (4)
  1. ZOLOFT [Concomitant]
  2. AMNESTEEM [Suspect]
     Indication: ACNE
     Route: 048
     Dates: start: 20100511, end: 20100816
  3. FIORICET [Concomitant]
  4. MULTIVITAMIN [Concomitant]

REACTIONS (2)
  - ABDOMINAL PAIN [None]
  - FAECES DISCOLOURED [None]
